FAERS Safety Report 4387223-5 (Version None)
Quarter: 2004Q2

REPORT INFORMATION
  Report Type: 
  Country: None (occurrence: None)
  Receive Date: 20040623
  Receipt Date: 20040608
  Transmission Date: 20050107
  Serious: Yes (Other)
  Sender: FDA-Public Use
  Company Number: US_0405102772

PATIENT
  Age: 62 Year
  Sex: Female

DRUGS (7)
  1. EVISTA [Suspect]
  2. AREDIA [Concomitant]
  3. MIACALCIN [Concomitant]
  4. HYDROCODONE [Concomitant]
  5. DURAGESIC [Concomitant]
  6. NORFLEX [Concomitant]
  7. SOMA [Concomitant]

REACTIONS (1)
  - HIP FRACTURE [None]
